FAERS Safety Report 6485282-7 (Version None)
Quarter: 2009Q4

REPORT INFORMATION
  Report Type: 
  Country: None (occurrence: None)
  Receive Date: 20091203
  Receipt Date: 20091119
  Transmission Date: 20100525
  Serious: Yes (Hospitalization)
  Sender: FDA-Public Use
  Company Number: 2009AL007366

PATIENT
  Age: 16 Year
  Sex: Female
  Weight: 43 kg

DRUGS (1)
  1. FLUOXETINE [Suspect]
     Dosage: 20 MG; QAM

REACTIONS (32)
  - ABNORMAL DREAMS [None]
  - AGGRESSION [None]
  - ANGER [None]
  - BINGE EATING [None]
  - BITE [None]
  - BODY DYSMORPHIC DISORDER [None]
  - COMPULSIVE SHOPPING [None]
  - CRYING [None]
  - DELUSION OF GRANDEUR [None]
  - DEPRESSED MOOD [None]
  - DEPRESSION [None]
  - DISINHIBITION [None]
  - DISTURBANCE IN ATTENTION [None]
  - ELEVATED MOOD [None]
  - ENERGY INCREASED [None]
  - FEELINGS OF WORTHLESSNESS [None]
  - INAPPROPRIATE AFFECT [None]
  - INSOMNIA [None]
  - INTENTIONAL SELF-INJURY [None]
  - IRRITABILITY [None]
  - MANIA [None]
  - MOOD SWINGS [None]
  - PARKINSONISM [None]
  - PRESSURE OF SPEECH [None]
  - RESTLESSNESS [None]
  - SCREAMING [None]
  - SEXUAL DYSFUNCTION [None]
  - STRESS [None]
  - SUICIDAL IDEATION [None]
  - SUICIDE ATTEMPT [None]
  - TACHYPHRENIA [None]
  - WEIGHT INCREASED [None]
